FAERS Safety Report 14946437 (Version 1)
Quarter: 2018Q3

REPORT INFORMATION
  Report Type: Spontaneous
  Country: US (occurrence: US)
  Receive Date: 20180529
  Receipt Date: 20180529
  Transmission Date: 20181010
  Serious: No
  Sender: FDA-Public Use
  Company Number: US-BRAINTREE LABORATORIES-170434

PATIENT
  Age: 33 Year
  Sex: Male
  Weight: 107.5 kg

DRUGS (1)
  1. NULYTELY [Suspect]
     Active Substance: POLYETHYLENE GLYCOL 3350\POTASSIUM CHLORIDE\SODIUM BICARBONATE\SODIUM CHLORIDE
     Indication: OFF LABEL USE
     Dosage: ~3L
     Route: 048
     Dates: start: 20170726, end: 20170726

REACTIONS (4)
  - Dizziness [None]
  - Dry mouth [None]
  - Fatigue [None]
  - Proctalgia [None]

NARRATIVE: CASE EVENT DATE: 20170726
